FAERS Safety Report 9167544 (Version 1)
Quarter: 2013Q1

REPORT INFORMATION
  Report Type: Spontaneous
  Country: US (occurrence: US)
  Receive Date: 20130318
  Receipt Date: 20130318
  Transmission Date: 20140127
  Serious: No
  Sender: FDA-Public Use
  Company Number: US-TEVA-392107USA

PATIENT
  Age: 70 Year
  Sex: Male
  Weight: 52.21 kg

DRUGS (1)
  1. QNASL [Suspect]
     Indication: NASAL INFLAMMATION
     Dosage: 320 MICROGRAM DAILY; 2 SPRAYS EACH NOSTRIL DAILY
     Route: 055
     Dates: start: 20130311, end: 20130313

REACTIONS (1)
  - Oesophageal discomfort [Recovered/Resolved]
